FAERS Safety Report 7348134-6 (Version None)
Quarter: 2011Q1

REPORT INFORMATION
  Report Type: 
  Country: None (occurrence: None)
  Receive Date: 20110311
  Receipt Date: 20110125
  Transmission Date: 20110831
  Serious: Yes (Death)
  Sender: FDA-Public Use
  Company Number: US-TYCO HEALTHCARE/MALLINCKRODT-T201100413

PATIENT
  Age: 70 Year
  Sex: Female

DRUGS (18)
  1. FLUOXETINE [Suspect]
     Route: 048
  2. TORSEMIDE [Suspect]
     Route: 048
  3. PREGABALIN [Suspect]
     Route: 048
  4. CLONAZEPAM [Suspect]
     Route: 048
  5. CHLORDIAZEPOXIDE [Suspect]
     Route: 048
  6. VITAMINS                           /90003601/ [Suspect]
     Route: 048
  7. FOLIC ACID [Suspect]
     Route: 048
  8. LOVASTATIN [Suspect]
     Route: 048
  9. ACETAMINOPHEN [Suspect]
     Route: 048
  10. LISINOPRIL [Suspect]
     Route: 048
  11. DESIPRAMIDE HCL [Suspect]
     Route: 048
  12. CYCLOBENZAPRINE [Suspect]
     Route: 048
  13. CALCIUM [Suspect]
     Route: 048
  14. DULOXETINE [Suspect]
     Route: 048
  15. MELOXICAM [Suspect]
     Route: 048
  16. METHADOSE [Suspect]
     Route: 048
  17. HYDROMORPHONE HCL [Suspect]
     Route: 048
  18. OXYCODONE/ACETAMINOPHEN [Suspect]
     Route: 048

REACTIONS (1)
  - COMPLETED SUICIDE [None]
